FAERS Safety Report 11400968 (Version 2)
Quarter: 2015Q4

REPORT INFORMATION
  Report Type: Spontaneous
  Country: US (occurrence: US)
  Receive Date: 20150820
  Receipt Date: 20151119
  Transmission Date: 20160304
  Serious: Yes (Death, Hospitalization)
  Sender: FDA-Public Use
  Company Number: US-JNJFOC-20150809083

PATIENT
  Age: 64 Year
  Sex: Female

DRUGS (2)
  1. XARELTO [Suspect]
     Active Substance: RIVAROXABAN
     Indication: PULMONARY EMBOLISM
     Route: 048
     Dates: start: 20141107, end: 20141127
  2. XARELTO [Suspect]
     Active Substance: RIVAROXABAN
     Indication: DEEP VEIN THROMBOSIS
     Route: 048
     Dates: start: 20141107, end: 20141127

REACTIONS (3)
  - Gastrointestinal haemorrhage [Unknown]
  - Cardiac arrest [Fatal]
  - Haemothorax [Unknown]

NARRATIVE: CASE EVENT DATE: 20141127
